FAERS Safety Report 5313817-6 (Version None)
Quarter: 2007Q2

REPORT INFORMATION
  Report Type: 
  Country: None (occurrence: None)
  Receive Date: 20070501
  Receipt Date: 20070420
  Transmission Date: 20071010
  Serious: Yes (Death, Hospitalization, Other)
  Sender: FDA-Public Use
  Company Number: US-PURDUE-USA_2007_0026547

PATIENT
  Sex: Female

DRUGS (1)
  1. OXYCONTIN [Suspect]
     Indication: FIBROMYALGIA
     Dosage: 40 MG, BID
     Route: 065
     Dates: start: 20070101

REACTIONS (7)
  - CARDIOMYOPATHY [None]
  - CHRONIC RESPIRATORY FAILURE [None]
  - DEATH [None]
  - HYPOTENSION [None]
  - MALAISE [None]
  - PAIN [None]
  - RENAL FAILURE CHRONIC [None]
